FAERS Safety Report 9306793 (Version 2)
Quarter: 2013Q2

REPORT INFORMATION
  Report Type: Spontaneous
  Country: IT (occurrence: IT)
  Receive Date: 20130523
  Receipt Date: 20130624
  Transmission Date: 20140414
  Serious: Yes (Hospitalization, Other)
  Sender: FDA-Public Use
  Company Number: IT-ALEXION PHARMACEUTICALS INC.-A201301105

PATIENT
  Age: 82 Year
  Sex: Female

DRUGS (10)
  1. SOLIRIS 300MG [Suspect]
     Indication: PAROXYSMAL NOCTURNAL HAEMOGLOBINURIA
     Dosage: 600 MG, QW
     Route: 042
     Dates: start: 20080711
  2. SOLIRIS 300MG [Suspect]
     Dosage: 900 MG, Q2W
     Route: 042
     Dates: end: 20130508
  3. ATENOLOLO [Concomitant]
     Dosage: 25 MG
     Route: 048
  4. PANTOPRAZOLE [Concomitant]
     Dosage: 40 MG
     Route: 048
  5. TAPAZOLE [Concomitant]
     Dosage: 2.5 MG
     Route: 048
  6. KCL-RETARD [Concomitant]
     Dosage: 120 MG
     Route: 048
  7. LAEVOLAC [Concomitant]
     Dosage: 66.7G/100ML
     Route: 048
  8. MOTILIUM [Concomitant]
     Dosage: 20 MG
     Route: 048
  9. LASIX [Concomitant]
     Dosage: 25 MG
     Route: 048
  10. LUVION [Concomitant]
     Dosage: 100 MG
     Route: 048

REACTIONS (3)
  - Cerebrovascular accident [Not Recovered/Not Resolved]
  - Escherichia urinary tract infection [Unknown]
  - Decubitus ulcer [Unknown]
